FAERS Safety Report 19269620 (Version 2)
Quarter: 2021Q2

REPORT INFORMATION
  Report Type: Report from Study
  Country: IL (occurrence: IL)
  Receive Date: 20210518
  Receipt Date: 20210519
  Transmission Date: 20210717
  Serious: No
  Sender: FDA-Public Use
  Company Number: NVSC2020IL144556

PATIENT
  Age: 59 Year
  Sex: Male
  Weight: 140 kg

DRUGS (2)
  1. COSENTYX [Suspect]
     Active Substance: SECUKINUMAB
     Indication: PSORIASIS
     Dosage: 300 MG, QW
     Route: 058
     Dates: start: 20200430
  2. COSENTYX [Suspect]
     Active Substance: SECUKINUMAB
     Dosage: 300 MG, QMO
     Route: 058

REACTIONS (8)
  - Facial paresis [Recovering/Resolving]
  - Weight increased [Not Recovered/Not Resolved]
  - Memory impairment [Unknown]
  - Inappropriate schedule of product administration [Unknown]
  - Pain in extremity [Recovering/Resolving]
  - Chromaturia [Unknown]
  - Peripheral swelling [Recovering/Resolving]
  - Pruritus [Not Recovered/Not Resolved]

NARRATIVE: CASE EVENT DATE: 20200516
